FAERS Safety Report 7104057-9 (Version None)
Quarter: 2010Q4

REPORT INFORMATION
  Report Type: 
  Country: None (occurrence: None)
  Receive Date: 20101115
  Receipt Date: 20100608
  Transmission Date: 20110411
  Serious: No
  Sender: FDA-Public Use
  Company Number: US-ALLERGAN-1006562US

PATIENT
  Age: 55 Year
  Sex: Female

DRUGS (2)
  1. BOTOX COSMETIC [Suspect]
     Indication: SKIN WRINKLING
     Dosage: 227 UNITS, SINGLE
     Dates: start: 20100418, end: 20100418
  2. JUVEDERM ULTRA PLUS [Concomitant]
     Indication: SKIN WRINKLING
     Dosage: UNK
     Dates: start: 20100418, end: 20100418

REACTIONS (4)
  - LIP SWELLING [None]
  - MUSCULAR WEAKNESS [None]
  - SPEECH DISORDER [None]
  - WRONG TECHNIQUE IN DRUG USAGE PROCESS [None]
